FAERS Safety Report 24529505 (Version 1)
Quarter: 2024Q4

REPORT INFORMATION
  Report Type: Spontaneous
  Country: AU (occurrence: AU)
  Receive Date: 20241021
  Receipt Date: 20241021
  Transmission Date: 20250115
  Serious: Yes (Hospitalization, Other)
  Sender: SANDOZ
  Company Number: None

PATIENT
  Age: 75 Year
  Sex: Male
  Weight: 83 kg

DRUGS (26)
  1. BORTEZOMIB [Suspect]
     Active Substance: BORTEZOMIB
     Indication: Plasma cell myeloma
     Dosage: 2.6 MG
     Route: 058
     Dates: start: 20240503, end: 20240503
  2. BORTEZOMIB [Suspect]
     Active Substance: BORTEZOMIB
     Dosage: 2.6 MG (1 TIME EVERY .5 WEEKS)
     Route: 065
     Dates: start: 20240729, end: 20240729
  3. BORTEZOMIB [Suspect]
     Active Substance: BORTEZOMIB
     Dosage: 5.2 MG, QW (INTERVAL: 1 WEEK)
     Route: 058
     Dates: start: 20240729, end: 20240729
  4. DECADRON (DEXAMETHASONE SODIUM PHOSPHATE) [Suspect]
     Active Substance: DEXAMETHASONE SODIUM PHOSPHATE
     Indication: Plasma cell myeloma
     Dosage: 20 MG
     Route: 048
     Dates: start: 20240503, end: 20240504
  5. DECADRON (DEXAMETHASONE SODIUM PHOSPHATE) [Suspect]
     Active Substance: DEXAMETHASONE SODIUM PHOSPHATE
     Dosage: 20 MG
     Route: 048
     Dates: start: 20240729, end: 20240730
  6. HUMAN IMMUNOGLOBULIN G [Suspect]
     Active Substance: HUMAN IMMUNOGLOBULIN G
     Indication: Hypogammaglobulinaemia
     Dosage: 10 %
     Route: 042
     Dates: start: 20240807
  7. MEZIGDOMIDE [Suspect]
     Active Substance: MEZIGDOMIDE
     Indication: Plasma cell myeloma
     Dosage: 0.3 MG
     Route: 048
     Dates: start: 20240503, end: 20240503
  8. MEZIGDOMIDE [Suspect]
     Active Substance: MEZIGDOMIDE
     Dosage: 1 MG
     Route: 048
     Dates: start: 20240719, end: 20240719
  9. MEZIGDOMIDE [Suspect]
     Active Substance: MEZIGDOMIDE
     Dosage: 1 MG
     Route: 048
     Dates: start: 20240720, end: 20240724
  10. ASPIRIN [Concomitant]
     Active Substance: ASPIRIN
     Indication: Thalamic stroke
     Dosage: UNK
     Route: 065
  11. ASPIRIN [Concomitant]
     Active Substance: ASPIRIN
     Indication: Thalamic stroke
     Dosage: 100 MG, QD (INTERVAL: 1 DAY)
     Route: 048
     Dates: start: 20231127
  12. ATOVAQUONE [Concomitant]
     Active Substance: ATOVAQUONE
     Indication: Prophylaxis
     Dosage: 1500 MG, QD (INTERVAL: 1 DAY)
     Route: 048
     Dates: start: 20240503
  13. CALCIUM CARBONATE [Concomitant]
     Active Substance: CALCIUM CARBONATE
     Indication: Prophylaxis
     Dosage: 1500 MG, QD (INTERVAL: 1 DAY)
     Route: 048
     Dates: start: 20240530
  14. CHOLECALCIFEROL [Concomitant]
     Active Substance: CHOLECALCIFEROL
     Indication: Prophylaxis
     Dosage: 25 UG, QD (INTERVAL: 1 DAY)
     Route: 048
     Dates: start: 20240530
  15. FAMOTIDINE [Concomitant]
     Active Substance: FAMOTIDINE
     Indication: Prophylaxis
     Dosage: 40 MG
     Route: 048
     Dates: start: 20240621
  16. HUMAN IMMUNOGLOBULIN G [Concomitant]
     Active Substance: HUMAN IMMUNOGLOBULIN G
     Indication: Prophylaxis
     Dosage: UNK
     Route: 065
  17. IRBESARTAN [Concomitant]
     Active Substance: IRBESARTAN
     Indication: Hypertension
     Dosage: 75 MG, QD (INTERVAL: 1 DAY)
     Route: 048
     Dates: start: 2019
  18. LORATADINE [Concomitant]
     Active Substance: LORATADINE
     Indication: Prophylaxis
     Dosage: 20 MG, QD (INTERVAL: 1 DAY)
     Route: 048
     Dates: start: 20231219
  19. NYSTATIN [Concomitant]
     Active Substance: NYSTATIN
     Indication: Prophylaxis
     Dosage: 3 ML, QD (INTERVAL: 1 DAY)
     Route: 002
     Dates: start: 20240804, end: 20240808
  20. ACETAMINOPHEN [Concomitant]
     Active Substance: ACETAMINOPHEN
     Indication: Product used for unknown indication
     Dosage: UNK
     Route: 065
  21. ROSUVASTATIN [Concomitant]
     Active Substance: ROSUVASTATIN
     Indication: Hyperlipidaemia
     Route: 065
  22. SODIUM BICARBONATE [Concomitant]
     Active Substance: SODIUM BICARBONATE
     Indication: Prophylaxis
     Dosage: UNK
     Route: 002
     Dates: start: 20240503
  23. SODIUM CHLORIDE [Concomitant]
     Active Substance: SODIUM CHLORIDE
     Indication: Hypotension
     Dosage: 3000 ML, QD (INTERVAL: 1 DAY)
     Route: 042
     Dates: start: 20240802, end: 20240802
  24. TERBINAFINE [Concomitant]
     Active Substance: TERBINAFINE\TERBINAFINE HYDROCHLORIDE
     Indication: Nail infection
     Dosage: 250 MG, QD (INTERVAL: 1 DAY)
     Route: 048
     Dates: start: 20240608
  25. VALACYCLOVIR HYDROCHLORIDE [Concomitant]
     Active Substance: VALACYCLOVIR HYDROCHLORIDE
     Indication: Prophylaxis
     Dosage: UNK
     Route: 065
  26. ZOLEDRONIC ACID [Concomitant]
     Active Substance: ZOLEDRONIC ACID
     Indication: Prophylaxis
     Dosage: 4.5 G, QMO (INTERVAL: 1 MONTH)
     Route: 042
     Dates: start: 20240530

REACTIONS (2)
  - Infusion related reaction [Recovered/Resolved]
  - Pneumonia pneumococcal [Recovered/Resolved]

NARRATIVE: CASE EVENT DATE: 20240729
